FAERS Safety Report 13703235 (Version 1)
Quarter: 2017Q2

REPORT INFORMATION
  Report Type: Spontaneous
  Country: US (occurrence: US)
  Receive Date: 20170629
  Receipt Date: 20170629
  Transmission Date: 20170830
  Serious: Yes (Hospitalization, Other)
  Sender: FDA-Public Use
  Company Number: US-MYLANLABS-2017M1038447

PATIENT

DRUGS (2)
  1. ASENAPINE [Suspect]
     Active Substance: ASENAPINE
     Indication: BIPOLAR DISORDER
     Route: 065
  2. PALIPERIDONE. [Suspect]
     Active Substance: PALIPERIDONE
     Indication: BIPOLAR DISORDER
     Route: 065

REACTIONS (1)
  - Drug-induced liver injury [Recovered/Resolved]
